FAERS Safety Report 21675866 (Version 5)
Quarter: 2024Q3

REPORT INFORMATION
  Report Type: Report from Study
  Country: DE (occurrence: DE)
  Receive Date: 20221202
  Receipt Date: 20240702
  Transmission Date: 20241017
  Serious: Yes (Hospitalization, Other)
  Sender: NOVARTIS
  Company Number: DE-002147023-NVSC2022DE275829

PATIENT
  Age: 26 Year
  Sex: Female
  Weight: 93 kg

DRUGS (6)
  1. COSENTYX [Suspect]
     Active Substance: SECUKINUMAB
     Indication: Psoriasis
     Dosage: 300 MG, QW (300MG/ 1 WK. ON 1 D/WK)
     Route: 058
     Dates: start: 20180308
  2. COSENTYX [Suspect]
     Active Substance: SECUKINUMAB
     Indication: Psoriatic arthropathy
  3. MONTELUKAST [Concomitant]
     Active Substance: MONTELUKAST SODIUM
     Indication: Asthma
     Dosage: 10 MG
     Route: 048
     Dates: start: 20200222
  4. LEVOCETIRIZINE DIHYDROCHLORIDE [Concomitant]
     Active Substance: LEVOCETIRIZINE DIHYDROCHLORIDE
     Indication: Pruritus
     Dosage: 5 MG
     Route: 048
  5. NUVARING [Concomitant]
     Active Substance: ETHINYL ESTRADIOL\ETONOGESTREL
     Indication: Contraception
     Dosage: 11.7 MG
     Route: 067
     Dates: start: 20210424
  6. NUVARING [Concomitant]
     Active Substance: ETHINYL ESTRADIOL\ETONOGESTREL
     Dosage: 2.7 MG
     Route: 067
     Dates: start: 20210424

REACTIONS (24)
  - Psoriatic arthropathy [Unknown]
  - Fibromyalgia [Not Recovered/Not Resolved]
  - Superinfection [Recovered/Resolved]
  - Pneumonia [Recovered/Resolved]
  - Intentional self-injury [Not Recovered/Not Resolved]
  - Sinusitis [Recovered/Resolved]
  - Floating patella [Not Recovered/Not Resolved]
  - Conjunctivitis [Recovered/Resolved]
  - Nasopharyngitis [Recovered/Resolved]
  - Psoriasis [Recovered/Resolved]
  - Hypertension [Not Recovered/Not Resolved]
  - Depression [Not Recovered/Not Resolved]
  - Otitis media [Recovered/Resolved]
  - Middle ear effusion [Recovered/Resolved]
  - Back pain [Not Recovered/Not Resolved]
  - Nasopharyngitis [Recovered/Resolved]
  - Vomiting [Recovered/Resolved]
  - Nausea [Recovered/Resolved]
  - Condition aggravated [Unknown]
  - Fatigue [Recovered/Resolved]
  - Fatigue [Not Recovered/Not Resolved]
  - COVID-19 [Recovered/Resolved]
  - Blood pressure diastolic increased [Unknown]
  - Hypertension [Not Recovered/Not Resolved]

NARRATIVE: CASE EVENT DATE: 20180808
